FAERS Safety Report 8889371 (Version 1)
Quarter: 2012Q4

REPORT INFORMATION
  Report Type: Spontaneous
  Country: US (occurrence: None)
  Receive Date: 20121101
  Receipt Date: 20121101
  Transmission Date: 20130627
  Serious: Yes (Hospitalization, Disabling)
  Sender: FDA-Public Use
  Company Number: None

PATIENT
  Sex: Male
  Weight: 106.8 kg

DRUGS (2)
  1. DEPOMEDROL [Suspect]
     Indication: BURSITIS
     Dates: start: 20120712
  2. MARCAIN [Suspect]
     Dates: start: 20120712

REACTIONS (1)
  - Arthritis bacterial [None]
